FAERS Safety Report 25786665 (Version 1)
Quarter: 2025Q3

REPORT INFORMATION
  Report Type: Spontaneous
  Country: GB (occurrence: GB)
  Receive Date: 20250910
  Receipt Date: 20250910
  Transmission Date: 20251021
  Serious: Yes (Other)
  Sender: B. BRAUN MEDICAL INC.
  Company Number: None

PATIENT
  Sex: Female

DRUGS (8)
  1. ACETAMINOPHEN [Suspect]
     Active Substance: ACETAMINOPHEN
  2. YUFLYMA [Suspect]
     Active Substance: ADALIMUMAB-AATY
  3. DOXYCYCLINE [Suspect]
     Active Substance: DOXYCYCLINE
  4. DICLOFENAC [Suspect]
     Active Substance: DICLOFENAC
  5. TRAMADOL [Suspect]
     Active Substance: TRAMADOL
  6. CLARITHROMYCIN [Suspect]
     Active Substance: CLARITHROMYCIN
  7. NAPROXEN [Suspect]
     Active Substance: NAPROXEN
  8. HYDROXYCHLOROQUINE [Suspect]
     Active Substance: HYDROXYCHLOROQUINE

REACTIONS (6)
  - Apnoea [Unknown]
  - Eye irritation [Unknown]
  - Dyspnoea [Unknown]
  - Vomiting [Unknown]
  - Nausea [Unknown]
  - Hypersensitivity [Unknown]
